FAERS Safety Report 18852166 (Version 1)
Quarter: 2021Q1

REPORT INFORMATION
  Report Type: Spontaneous
  Country: US (occurrence: US)
  Receive Date: 20210204
  Receipt Date: 20210204
  Transmission Date: 20210420
  Serious: Yes (Other)
  Sender: FDA-Public Use
  Company Number: None

PATIENT
  Sex: Female

DRUGS (1)
  1. CREST WHITENING SYSTEM STRIPS [Suspect]
     Active Substance: HYDROGEN PEROXIDE
     Dosage: ?          OTHER DOSE:1 APPLICATION;OTHER FREQUENCY:1 WEEK;OTHER ROUTE:INTRAORAL?

REACTIONS (1)
  - Tooth injury [None]
